FAERS Safety Report 4672693-5 (Version None)
Quarter: 2005Q2

REPORT INFORMATION
  Report Type: 
  Country: None (occurrence: None)
  Receive Date: 20050524
  Receipt Date: 20050513
  Transmission Date: 20051028
  Serious: Yes (Hospitalization)
  Sender: FDA-Public Use
  Company Number: FR-ROCHE-404805

PATIENT
  Age: 25 Year
  Sex: Female
  Weight: 45 kg

DRUGS (4)
  1. CELLCEPT [Suspect]
     Indication: PROPHYLAXIS AGAINST TRANSPLANT REJECTION
     Route: 048
     Dates: start: 20040402, end: 20050321
  2. AMLOR [Concomitant]
     Indication: DRUG USE FOR UNKNOWN INDICATION
  3. SECTRAL [Concomitant]
     Indication: DRUG USE FOR UNKNOWN INDICATION
  4. PROGRAF [Concomitant]
     Indication: DRUG USE FOR UNKNOWN INDICATION

REACTIONS (3)
  - AGRANULOCYTOSIS [None]
  - BONE MARROW TOXICITY [None]
  - PAIN [None]
